FAERS Safety Report 24243613 (Version 1)
Quarter: 2024Q3

REPORT INFORMATION
  Report Type: Spontaneous
  Country: US (occurrence: None)
  Receive Date: 20240823
  Receipt Date: 20240823
  Transmission Date: 20241017
  Serious: Yes (Other)
  Sender: EMMAUS LIFE SCIENCES
  Company Number: US-Emmaus Medical, Inc.-EMM202308-000192

PATIENT
  Age: 6 Year
  Sex: Male
  Weight: 17.6 kg

DRUGS (8)
  1. ENDARI [Suspect]
     Active Substance: GLUTAMINE
     Indication: Sickle cell anaemia with crisis
     Dosage: 5 G
     Route: 048
     Dates: start: 202212
  2. ENDARI [Suspect]
     Active Substance: GLUTAMINE
     Dosage: 5 G
     Route: 048
  3. ENDARI [Suspect]
     Active Substance: GLUTAMINE
     Dosage: 5 G
     Route: 048
     Dates: start: 202302
  4. HYDREA [Concomitant]
     Active Substance: HYDROXYUREA
     Indication: Product used for unknown indication
     Dosage: 5.6 ML (100 MG/ML)
     Route: 048
     Dates: start: 201802
  5. HYDREA [Concomitant]
     Active Substance: HYDROXYUREA
     Dosage: UNKNOWN (INCREASED DOSE)
     Route: 065
  6. FOLVITE [Concomitant]
     Active Substance: FOLIC ACID
     Indication: Product used for unknown indication
     Dosage: 1 MG
     Route: 048
  7. GUANFACINE [Concomitant]
     Active Substance: GUANFACINE
     Indication: Product used for unknown indication
     Dosage: UNKNOWN
     Route: 065
  8. ASPIRIN [Concomitant]
     Active Substance: ASPIRIN
     Indication: Product used for unknown indication
     Dosage: 81 MG
     Route: 048

REACTIONS (3)
  - Sickle cell anaemia with crisis [Recovered/Resolved]
  - Oropharyngeal pain [Unknown]
  - Coxsackie viral infection [Recovered/Resolved]

NARRATIVE: CASE EVENT DATE: 20230617
